FAERS Safety Report 8109339 (Version 3)
Quarter: 2013Q4

REPORT INFORMATION
  Report Type: Spontaneous
  Country: US (occurrence: US)
  Receive Date: 20110826
  Receipt Date: 20131202
  Transmission Date: 20140711
  Serious: Yes (Other)
  Sender: FDA-Public Use
  Company Number: US-BAYER-2011-075238

PATIENT
  Age: 17 Year
  Sex: Female

DRUGS (4)
  1. YAZ [Suspect]
     Indication: MENSTRUATION IRREGULAR
     Dosage: UNK
     Dates: start: 2005, end: 2007
  2. YASMIN [Suspect]
     Indication: MENSTRUATION IRREGULAR
     Dosage: UNK
     Dates: start: 2005, end: 2007
  3. TYLENOL [PARACETAMOL] [Concomitant]
  4. PROGESTERONE [Concomitant]
     Route: 030

REACTIONS (5)
  - Gallbladder injury [Unknown]
  - Cholecystitis acute [None]
  - Injury [Unknown]
  - Pain [Unknown]
  - Off label use [None]
